FAERS Safety Report 9178266 (Version 1)
Quarter: 2013Q1

REPORT INFORMATION
  Report Type: Spontaneous
  Country: US (occurrence: US)
  Receive Date: 20130321
  Receipt Date: 20130321
  Transmission Date: 20140127
  Serious: Yes (Hospitalization)
  Sender: FDA-Public Use
  Company Number: US-BRISTOL-MYERS SQUIBB COMPANY-17473885

PATIENT
  Sex: Female

DRUGS (2)
  1. COUMADIN [Suspect]
  2. BYDUREON [Suspect]

REACTIONS (1)
  - Thrombocytopenia [Unknown]
